FAERS Safety Report 19196953 (Version 2)
Quarter: 2021Q3

REPORT INFORMATION
  Report Type: Spontaneous
  Country: US (occurrence: US)
  Receive Date: 20210429
  Receipt Date: 20210720
  Transmission Date: 20211014
  Serious: Yes (Disabling, Other)
  Sender: FDA-Public Use
  Company Number: US-AMERICAN REGENT INC-2021000999

PATIENT
  Age: 947 Year
  Sex: Female
  Weight: 72.3 kg

DRUGS (40)
  1. INJECTAFER [Suspect]
     Active Substance: FERRIC CARBOXYMALTOSE
     Dosage: 750 MILLIGRAM IN 250 ML NSS 0.9%
     Route: 042
     Dates: start: 20180611, end: 20180611
  2. CHOLECALCIFEROL [Concomitant]
     Active Substance: CHOLECALCIFEROL
     Indication: PRODUCT USED FOR UNKNOWN INDICATION
     Dosage: TAKE 10,000 UNITS BY MOUTH DAILY
     Route: 048
     Dates: start: 20170807, end: 20200706
  3. VITAMIN B12 [Concomitant]
     Active Substance: CYANOCOBALAMIN
     Indication: PRODUCT USED FOR UNKNOWN INDICATION
     Dosage: PLACE 1,000 MCG UNDER THE TONGUE DAILY
     Route: 060
     Dates: start: 20170327, end: 20180726
  4. CARAFATE [Concomitant]
     Active Substance: SUCRALFATE
     Indication: ABDOMINAL PAIN UPPER
     Dosage: TAKE 1 TAB BY MOUTH 4 TIMES A DAY. AFTER MEALS IF NEEDED FOR EPIGASTRIC PAIN
     Route: 048
     Dates: start: 20170306
  5. BENADRYL [Concomitant]
     Active Substance: DIPHENHYDRAMINE HYDROCHLORIDE
     Indication: MIGRAINE
     Dosage: 1 TABLET UP TO TWICE A DAY FOR BAD MIGRAINE,NOT TO EXCEED 3 DAYS A WEEK
     Route: 065
     Dates: start: 20170221
  6. LEVSIN [Concomitant]
     Active Substance: HYOSCYAMINE SULFATE
     Indication: PRODUCT USED FOR UNKNOWN INDICATION
     Dosage: PLACE 1 TAB UNDER THE TONGUE 4 TIMES A DAY
     Route: 060
     Dates: start: 20160111, end: 20180112
  7. IRON                               /00023503/ [Concomitant]
     Active Substance: IRON
     Indication: PRODUCT USED FOR UNKNOWN INDICATION
     Dosage: 1 TABLET DAILY
     Route: 065
     Dates: end: 20181007
  8. ANUSOL?HC                          /00028604/ [Concomitant]
     Indication: PRODUCT USED FOR UNKNOWN INDICATION
     Dosage: ADMINISTER INTO THE RECTUM 2 TIMES A DAY
     Route: 054
     Dates: start: 20180521, end: 20180726
  9. KLONOPIN [Concomitant]
     Active Substance: CLONAZEPAM
     Dosage: TAKE 1/2 TABLET BY MOUTH EVERY MORNING AND 1 TABLET AT BEDTIME
     Route: 065
     Dates: start: 20180630, end: 20190516
  10. FLEXERIL [Concomitant]
     Active Substance: CYCLOBENZAPRINE HYDROCHLORIDE
     Indication: PAIN
     Dosage: TAKE 1 TAB BY MOUTH 2 TIMES A DAY AS NEEDED FOR PAIN
     Route: 048
     Dates: start: 20180117, end: 20180628
  11. XOPENEX HFA [Concomitant]
     Active Substance: LEVALBUTEROL TARTRATE
     Indication: WHEEZING
     Dosage: INHALE 2 PUFFS BY MOUTH EVERY 4 HOURS AS NEEDED FOR WHEEZING
     Dates: start: 20170210, end: 20190516
  12. PRENATAL VITAMINS                  /02014401/ [Concomitant]
     Active Substance: VITAMINS
     Indication: PRODUCT USED FOR UNKNOWN INDICATION
     Dosage: TAKE 1/2 TABLET EVERY DAY
     Route: 048
     Dates: start: 20141018
  13. ZYRTEC [Concomitant]
     Active Substance: CETIRIZINE HYDROCHLORIDE
     Indication: PRODUCT USED FOR UNKNOWN INDICATION
     Dosage: TAKE 1 TAB BY MOUTH DAILY AS NEEDED
     Route: 048
     Dates: start: 20181003, end: 20200406
  14. FLONASE                            /00908302/ [Concomitant]
     Active Substance: MOMETASONE FUROATE
     Indication: PRODUCT USED FOR UNKNOWN INDICATION
     Dosage: ADMINISTER 2 SPRAYS INTO EACH NOSTRIL DAILY
     Route: 045
     Dates: start: 20180726, end: 20200406
  15. BENZONATATE. [Concomitant]
     Active Substance: BENZONATATE
     Indication: PRODUCT USED FOR UNKNOWN INDICATION
     Dosage: TAKE 1 CAP BY MOUTH DAILY
     Route: 048
     Dates: start: 20180627, end: 20200406
  16. INJECTAFER [Suspect]
     Active Substance: FERRIC CARBOXYMALTOSE
     Dosage: 750 MILLIGRAM IN 250 ML NSS 0.9%
     Route: 042
     Dates: start: 20181210, end: 20181210
  17. TOPAMAX [Concomitant]
     Active Substance: TOPIRAMATE
     Indication: PRODUCT USED FOR UNKNOWN INDICATION
     Dosage: 1 TABLET AT NIGHT FOR 2 WEEKS, THEN INCREASE TO 2 TABLETS AT NIGHT
     Route: 065
     Dates: start: 20170417, end: 20171017
  18. ZANTAC [Concomitant]
     Active Substance: RANITIDINE HYDROCHLORIDE
     Indication: PRODUCT USED FOR UNKNOWN INDICATION
     Dosage: TAKE 1 TAB BY MOUTH 2 TIMES A DAY. 1 TAB AS NEEDED
     Route: 048
     Dates: start: 20170306, end: 20190923
  19. HYDROCORTISONE. [Concomitant]
     Active Substance: HYDROCORTISONE
     Indication: PRODUCT USED FOR UNKNOWN INDICATION
     Dosage: APPLY TOPICALLY TO AFFECTED AREA 2 TIMES A DAY. APPLY AS NEEDED
     Route: 061
     Dates: start: 20170209
  20. FLUTICASONE FUROATE [Concomitant]
     Active Substance: FLUTICASONE FUROATE
     Indication: PRODUCT USED FOR UNKNOWN INDICATION
     Dosage: INHALE 1 PUFF BY MOUTH DAILY
     Dates: start: 20170427, end: 20171009
  21. HYDROCODONE BITARTRATE AND ACETAMINOPHEN [Concomitant]
     Active Substance: ACETAMINOPHEN\HYDROCODONE BITARTRATE
     Indication: PAIN
     Dosage: TAKE 1 TABLET BY MOUTH TWICE A DAY AS NEEDED FOR PAIN
     Route: 048
     Dates: start: 20170210, end: 20190516
  22. BENTYL [Concomitant]
     Active Substance: DICYCLOMINE HYDROCHLORIDE
     Indication: PRODUCT USED FOR UNKNOWN INDICATION
     Dosage: TAKE 1 TAB BY MOUTH 3 TIMES A DAY
     Route: 048
     Dates: start: 20161003, end: 20180628
  23. MECLIZINE [Concomitant]
     Active Substance: MECLIZINE HYDROCHLORIDE
     Indication: VERTIGO
     Dosage: TAKE 1 TABLET EVERY 8 HOURS AS NEEDED FOR VERTIGO
     Route: 048
     Dates: start: 20141203
  24. CLONAZEPAM CEVALLOS [Concomitant]
     Indication: PRODUCT USED FOR UNKNOWN INDICATION
     Dosage: 1 TAB TWICE DAILY AS NEEDED
     Route: 048
     Dates: end: 20180313
  25. KLONOPIN [Concomitant]
     Active Substance: CLONAZEPAM
     Indication: PRODUCT USED FOR UNKNOWN INDICATION
     Dosage: TAKE 0.5 MG BY MOUTH 2 TIMES A DAY
     Route: 048
     Dates: start: 20180128, end: 20180626
  26. QVAR [Concomitant]
     Active Substance: BECLOMETHASONE DIPROPIONATE
     Indication: PRODUCT USED FOR UNKNOWN INDICATION
     Dosage: INHALE 1 PUFF BY MOUTH 2 TIMES A DAY
     Dates: start: 20180806, end: 20190816
  27. INJECTAFER [Suspect]
     Active Substance: FERRIC CARBOXYMALTOSE
     Dosage: 750 MILLIGRAM IN 250 ML NSS 0.9%
     Route: 042
     Dates: start: 20170926, end: 20170926
  28. INJECTAFER [Suspect]
     Active Substance: FERRIC CARBOXYMALTOSE
     Dosage: 750 MILLIGRAM IN 100 ML NSS 0.9%
     Dates: start: 20190429, end: 20190429
  29. VITAMIN B2 [Concomitant]
     Active Substance: RIBOFLAVIN
     Indication: PRODUCT USED FOR UNKNOWN INDICATION
     Dosage: 1 TABLET DAILY
     Route: 065
     Dates: start: 20170804, end: 20191218
  30. METROCREAM [Concomitant]
     Active Substance: METRONIDAZOLE
     Indication: PRODUCT USED FOR UNKNOWN INDICATION
     Dosage: APPLY TO AFFECTED AREAS OF FACE ONCE DAILY
     Route: 065
     Dates: start: 20170525, end: 20191218
  31. PRILOSEC [Concomitant]
     Active Substance: OMEPRAZOLE MAGNESIUM
     Indication: PRODUCT USED FOR UNKNOWN INDICATION
     Dosage: TAKE 1 CAP BY MOUTH DAILY. ONE PILL DAILY AS NEEDED
     Route: 048
     Dates: start: 20170306, end: 20190923
  32. NYSTATIN. [Concomitant]
     Active Substance: NYSTATIN
     Indication: PRODUCT USED FOR UNKNOWN INDICATION
     Dosage: SWISH AND SWALLOW 5 ML 4 TIMES A DAY
     Route: 048
     Dates: start: 20171009
  33. INJECTAFER [Suspect]
     Active Substance: FERRIC CARBOXYMALTOSE
     Indication: IRON DEFICIENCY ANAEMIA
     Dosage: 750 MILLIGRAM IN 250 ML NSS 0.9%
     Route: 042
     Dates: start: 20170919, end: 20170919
  34. INJECTAFER [Suspect]
     Active Substance: FERRIC CARBOXYMALTOSE
     Dosage: UNK UNK, SINGLE
  35. VITAMIN B12 [Concomitant]
     Active Substance: CYANOCOBALAMIN
     Indication: PRODUCT USED FOR UNKNOWN INDICATION
     Dosage: TAKE 100 MCG BY MOUTH DAILY
     Route: 048
     Dates: start: 20170619, end: 20200917
  36. NAPROXEN. [Concomitant]
     Active Substance: NAPROXEN
     Indication: PRODUCT USED FOR UNKNOWN INDICATION
     Dosage: 1 TABLET TWICE A DAY AS NEEDED
     Route: 065
     Dates: start: 20170615, end: 20191218
  37. MAGNESIUM OXIDE. [Concomitant]
     Active Substance: MAGNESIUM OXIDE
     Indication: PRODUCT USED FOR UNKNOWN INDICATION
     Dosage: TAKE 250 MG BY MOUTH DAILY
     Route: 048
     Dates: start: 20170221, end: 20191218
  38. CLOTRIMAZOLE W/HYDROCORTISONE [Concomitant]
     Active Substance: CLOTRIMAZOLE\HYDROCORTISONE
     Indication: PRODUCT USED FOR UNKNOWN INDICATION
     Dosage: APPLY 1 TUBE TOPICALLY TO AFFECTED AREA 2 TIMES A DAY. USE AS NEEDED
     Route: 061
     Dates: start: 20170209, end: 20190816
  39. BENTYL [Concomitant]
     Active Substance: DICYCLOMINE HYDROCHLORIDE
     Dosage: TAKE 1 CAP BY MOUTH 4 TIMES A DAY BEFORE MEALS AND AT BEDTIME. ONLY TAKE IF ABDOMINAL PAIN
     Route: 048
     Dates: start: 20180119, end: 20200606
  40. PRED FORTE [Concomitant]
     Active Substance: PREDNISOLONE ACETATE
     Indication: PRODUCT USED FOR UNKNOWN INDICATION
     Dosage: ONE DROP TO BOTH EYES 2 TIMES DAILY
     Route: 047
     Dates: start: 20181203, end: 20190104

REACTIONS (22)
  - Condition aggravated [Not Recovered/Not Resolved]
  - Pain [Not Recovered/Not Resolved]
  - Headache [Recovered/Resolved]
  - Dyspnoea [Recovered/Resolved]
  - Tooth disorder [Not Recovered/Not Resolved]
  - Hypophosphataemia [Not Recovered/Not Resolved]
  - Back pain [Not Recovered/Not Resolved]
  - Palpitations [Not Recovered/Not Resolved]
  - Anhedonia [Not Recovered/Not Resolved]
  - Memory impairment [Not Recovered/Not Resolved]
  - Arthralgia [Recovered/Resolved]
  - Anxiety [Not Recovered/Not Resolved]
  - Muscle spasms [Not Recovered/Not Resolved]
  - Dizziness [Recovered/Resolved]
  - Arthritis [Not Recovered/Not Resolved]
  - Myalgia [Not Recovered/Not Resolved]
  - Dyspnoea exertional [Recovered/Resolved]
  - Musculoskeletal chest pain [Not Recovered/Not Resolved]
  - Emotional distress [Not Recovered/Not Resolved]
  - Product quality issue [Unknown]
  - Malaise [Not Recovered/Not Resolved]
  - Jaw disorder [Not Recovered/Not Resolved]

NARRATIVE: CASE EVENT DATE: 201709
